FAERS Safety Report 4992171-3 (Version None)
Quarter: 2006Q2

REPORT INFORMATION
  Report Type: 
  Country: None (occurrence: None)
  Receive Date: 20060504
  Receipt Date: 20060425
  Transmission Date: 20061013
  Serious: Yes (Life-Threatening, Hospitalization)
  Sender: FDA-Public Use
  Company Number: ES-BRISTOL-MYERS SQUIBB COMPANY-13360482

PATIENT
  Age: 56 Year
  Sex: Male
  Weight: 77 kg

DRUGS (5)
  1. APROVEL TABS 150 MG [Suspect]
     Indication: HYPERTENSION
     Route: 048
     Dates: start: 20060321, end: 20060321
  2. ALLOPURINOL [Concomitant]
     Indication: HYPERURICAEMIA
     Route: 048
     Dates: start: 20060318
  3. MUCOSAN [Concomitant]
     Indication: NASOPHARYNGITIS
     Route: 048
     Dates: start: 20060318
  4. TERMALGIN [Concomitant]
     Indication: NASOPHARYNGITIS
     Route: 048
     Dates: start: 20060318
  5. CHLORTHALIDONE [Concomitant]
     Indication: HYPERTENSION
     Route: 048
     Dates: start: 20060318, end: 20060320

REACTIONS (3)
  - GRAND MAL CONVULSION [None]
  - HYPOTENSION [None]
  - RENAL FAILURE [None]
